FAERS Safety Report 9485696 (Version 3)
Quarter: 2015Q1

REPORT INFORMATION
  Report Type: Report from Study
  Country: GB (occurrence: GB)
  Receive Date: 20130829
  Receipt Date: 20150303
  Transmission Date: 20150721
  Serious: Yes (Death, Hospitalization, Other)
  Sender: FDA-Public Use
  Company Number: GB-AMGEN-GBRCT2013060166

PATIENT
  Age: 51 Year
  Sex: Male

DRUGS (34)
  1. METRONIDAZOLE. [Concomitant]
     Active Substance: METRONIDAZOLE
     Dosage: 500 MG, 3X/DAY
     Route: 042
     Dates: start: 20130717, end: 20130720
  2. CYCLIZINE [Concomitant]
     Active Substance: CYCLIZINE
     Indication: NAUSEA
     Dosage: 50 MG, 1X/DAY
     Route: 042
     Dates: start: 20130714, end: 20130719
  3. HEPARIN [Concomitant]
     Active Substance: HEPARIN SODIUM
     Dosage: (5000 UNIT NOT REPORTED,1 IN 1 D)
     Route: 058
     Dates: start: 20130719, end: 20130720
  4. NOREPINEPHRINE [Concomitant]
     Active Substance: NOREPINEPHRINE\NOREPINEPHRINE BITARTRATE
     Indication: SEPSIS
     Dosage: 8 MG, UNK
     Route: 042
     Dates: start: 20130719, end: 20130720
  5. LEFLUNOMIDE. [Concomitant]
     Active Substance: LEFLUNOMIDE
     Dosage: 20 MG, ALTERNATE DAY
     Route: 048
     Dates: start: 20090217
  6. CO-DYDRAMOL [Concomitant]
     Active Substance: ACETAMINOPHEN\DIHYDROCODEINE
     Dosage: UNK
  7. ZOPICLONE [Concomitant]
     Active Substance: ZOPICLONE
     Indication: INSOMNIA
     Dosage: UNK
     Dates: start: 20110302
  8. GENTAMYCIN                         /00047102/ [Concomitant]
     Indication: INFECTION
     Dosage: 360 MG, UNK
     Route: 042
     Dates: start: 20130717, end: 20130717
  9. MORPHINE [Concomitant]
     Active Substance: MORPHINE
     Indication: PAIN
     Dosage: 15 MG, UNK
     Route: 042
     Dates: start: 20130717, end: 20130718
  10. FUROSEMIDE. [Concomitant]
     Active Substance: FUROSEMIDE
     Indication: OEDEMA
     Dosage: 40 MG, UNK
     Route: 042
     Dates: start: 20130719, end: 20130719
  11. NOREPINEPHRINE [Concomitant]
     Active Substance: NOREPINEPHRINE\NOREPINEPHRINE BITARTRATE
     Dosage: 32 UG, UNK
     Route: 058
     Dates: start: 20130720, end: 20130720
  12. DALTEPARIN SODIUM [Concomitant]
     Active Substance: DALTEPARIN SODIUM
     Indication: PROPHYLAXIS
  13. CALCIUM GLUCONATE. [Concomitant]
     Active Substance: CALCIUM GLUCONATE
     Indication: HYPOCALCAEMIA
     Dosage: 10 ML, 10%
     Route: 042
     Dates: start: 20130720, end: 20130720
  14. OMEPRAZOLE. [Concomitant]
     Active Substance: OMEPRAZOLE
     Dosage: 40 MG, 1X/DAY
     Route: 048
     Dates: start: 20130714, end: 20130719
  15. EPOPROSTENOL [Concomitant]
     Active Substance: EPOPROSTENOL
     Indication: PULMONARY HYPERTENSION
     Dosage: 500 UG, UNK
     Route: 058
     Dates: start: 20130719, end: 20130720
  16. HYDROCORTISONE. [Concomitant]
     Active Substance: HYDROCORTISONE
     Indication: COLITIS
     Dosage: 100 MG, 4X/DAY
     Route: 042
     Dates: start: 20130716, end: 20130716
  17. HYDROXYCHLOROQUINE [Concomitant]
     Active Substance: HYDROXYCHLOROQUINE
     Dosage: 200 MG, 1X/DAY
     Route: 048
     Dates: start: 20080910
  18. DEPO-MEDRONE [Concomitant]
     Active Substance: METHYLPREDNISOLONE
     Dosage: 20 MG, UNK
     Route: 014
     Dates: start: 20120226, end: 20120226
  19. TAZOCIN [Concomitant]
     Active Substance: PIPERACILLIN SODIUM\TAZOBACTAM SODIUM
     Dosage: UNK
  20. TRAMADOL [Concomitant]
     Active Substance: TRAMADOL
     Indication: ANALGESIC THERAPY
     Dosage: 50 MG, 4X/DAY
     Route: 048
     Dates: start: 20130714, end: 20130716
  21. FENTANYL. [Concomitant]
     Active Substance: FENTANYL
     Indication: ANALGESIC THERAPY
     Dosage: 500 MG, 1X/DAY
     Route: 042
     Dates: start: 20130719, end: 20130720
  22. RANITIDINE [Concomitant]
     Active Substance: RANITIDINE\RANITIDINE HYDROCHLORIDE
     Indication: COLITIS
     Dosage: 50 MG, 2X/DAY
     Route: 042
     Dates: start: 20130719, end: 20130720
  23. ETANERCEPT [Suspect]
     Active Substance: ETANERCEPT
     Indication: RHEUMATOID ARTHRITIS
     Dosage: 50 MG, QWK
     Route: 058
     Dates: start: 20130708, end: 201307
  24. METHOTREXATE [Concomitant]
     Active Substance: METHOTREXATE
     Dosage: 25 MG, WEEKLY
     Route: 058
     Dates: start: 20080227
  25. METRONIDAZOLE. [Concomitant]
     Active Substance: METRONIDAZOLE
     Indication: INFECTION
     Dosage: 400 MG, 3X/DAY
     Route: 048
     Dates: start: 20130716, end: 20130716
  26. DALTEPARIN SODIUM [Concomitant]
     Active Substance: DALTEPARIN SODIUM
     Indication: THROMBOSIS PROPHYLAXIS
     Dosage: (5000 UNIT NOT REPORTED,1 IN 1 D)
     Route: 058
     Dates: start: 20130717, end: 20130720
  27. METOCLOPRAMIDE. [Concomitant]
     Active Substance: METOCLOPRAMIDE
     Dosage: 10 MG, 3X/DAY
     Route: 042
     Dates: start: 20130717, end: 20130720
  28. PROPOFOL. [Concomitant]
     Active Substance: PROPOFOL
     Indication: SEDATION
     Dosage: 10 MG, 1X/DAY
     Route: 042
     Dates: start: 20130719, end: 20130720
  29. FLUCONAZOLE. [Concomitant]
     Active Substance: FLUCONAZOLE
     Indication: INFECTION
     Dosage: 400 MG, 1X/DAY
     Route: 042
     Dates: start: 20130719, end: 20130720
  30. SULFASALAZINE. [Concomitant]
     Active Substance: SULFASALAZINE
     Dosage: 1 G, 2X/DAY
     Route: 048
     Dates: start: 20120418
  31. DIAZEPAM. [Concomitant]
     Active Substance: DIAZEPAM
     Dosage: 2 MG, UNK
     Dates: start: 20130717, end: 20130717
  32. OMEPRAZOLE. [Concomitant]
     Active Substance: OMEPRAZOLE
     Indication: OESOPHAGITIS
     Dosage: 40 MG,1 IN 1 D
     Dates: start: 20070912
  33. AUGMENTIN [Concomitant]
     Active Substance: AMOXICILLIN\CLAVULANATE POTASSIUM
     Indication: INFECTION
     Dosage: 1.2 G, 3X/DAY
     Route: 042
     Dates: start: 20130717, end: 20130719
  34. PARACETAMOL [Concomitant]
     Active Substance: ACETAMINOPHEN
     Indication: ANALGESIC THERAPY
     Dosage: 1 G, UNK
     Route: 042
     Dates: start: 20130714, end: 20130714

REACTIONS (4)
  - Anastomotic complication [Fatal]
  - Colitis ischaemic [Fatal]
  - Peritonitis [Fatal]
  - Multi-organ failure [Fatal]

NARRATIVE: CASE EVENT DATE: 20130713
